FAERS Safety Report 22165778 (Version 2)
Quarter: 2023Q2

REPORT INFORMATION
  Report Type: Other
  Country: JP (occurrence: None)
  Receive Date: 20230403
  Receipt Date: 20230519
  Transmission Date: 20230721
  Serious: Yes (Other)
  Sender: FDA-Public Use
  Company Number: JP-ROCHE-3322829

PATIENT
  Age: 56 Year

DRUGS (1)
  1. RITUXIMAB [Suspect]
     Active Substance: RITUXIMAB
     Indication: Kidney transplant rejection
     Route: 041

REACTIONS (2)
  - Pancreatic carcinoma [Unknown]
  - Off label use [Unknown]
